FAERS Safety Report 10042490 (Version 1)
Quarter: 2014Q1

REPORT INFORMATION
  Report Type: Spontaneous
  Country: ES (occurrence: ES)
  Receive Date: 20140327
  Receipt Date: 20140327
  Transmission Date: 20141002
  Serious: Yes (Other)
  Sender: FDA-Public Use
  Company Number: PHHY2014ES034407

PATIENT
  Sex: 0
  Weight: 3.6 kg

DRUGS (3)
  1. TACROLIMUS [Suspect]
     Route: 064
  2. AZATHIOPRINE [Suspect]
     Route: 064
  3. CORTICOSTEROIDS [Suspect]
     Route: 064

REACTIONS (3)
  - Cardiac hypertrophy [Recovered/Resolved]
  - Premature baby [Unknown]
  - Foetal exposure during pregnancy [Unknown]
